FAERS Safety Report 8223677-1 (Version None)
Quarter: 2012Q1

REPORT INFORMATION
  Report Type: 
  Country: None (occurrence: None)
  Receive Date: 20120321
  Receipt Date: 20120306
  Transmission Date: 20120608
  Serious: Yes (Hospitalization)
  Sender: FDA-Public Use
  Company Number: DE-EISAI INC-E2020-09953-CLI-DE

PATIENT
  Sex: Male
  Weight: 73.1 kg

DRUGS (5)
  1. AZOPT [Concomitant]
     Indication: GLAUCOMA
     Dates: start: 20030101
  2. XALATAN [Concomitant]
     Indication: GLAUCOMA
     Dates: start: 20030101
  3. CITALOPRAM HYDROBROMIDE [Concomitant]
     Indication: DEPRESSION
     Route: 048
     Dates: start: 20110926
  4. ARICEPT [Suspect]
     Route: 048
     Dates: start: 20110926
  5. ARTELAC [Concomitant]
     Indication: GLAUCOMA
     Dates: start: 20030101

REACTIONS (1)
  - DEVICE RELATED INFECTION [None]
